FAERS Safety Report 11741012 (Version 1)
Quarter: 2015Q4

REPORT INFORMATION
  Report Type: Spontaneous
  Country: GB (occurrence: GB)
  Receive Date: 20151115
  Receipt Date: 20151115
  Transmission Date: 20160304
  Serious: Yes (Disabling, Other)
  Sender: FDA-Public Use
  Company Number: GB-HOSPIRA-3074443

PATIENT
  Age: 61 Year
  Sex: Male

DRUGS (2)
  1. XALACOM [Concomitant]
     Active Substance: LATANOPROST\TIMOLOL MALEATE
     Indication: PRODUCT USED FOR UNKNOWN INDICATION
     Route: 047
  2. GENTAMICIN SULFATE. [Suspect]
     Active Substance: GENTAMICIN SULFATE
     Indication: ANTIBIOTIC PROPHYLAXIS
     Dosage: 20 MG/ML
     Dates: start: 20150127

REACTIONS (8)
  - Cataract [Not Recovered/Not Resolved]
  - Blindness [Not Recovered/Not Resolved]
  - Toxic optic neuropathy [Not Recovered/Not Resolved]
  - Corneal disorder [Not Recovered/Not Resolved]
  - Corneal oedema [Recovering/Resolving]
  - Corneal disorder [Not Recovered/Not Resolved]
  - Optic nerve injury [Not Recovered/Not Resolved]
  - Vision blurred [Not Recovered/Not Resolved]

NARRATIVE: CASE EVENT DATE: 20150127
